FAERS Safety Report 9998073 (Version 1)
Quarter: 2014Q1

REPORT INFORMATION
  Report Type: Spontaneous
  Country: US (occurrence: None)
  Receive Date: 20140218
  Receipt Date: 20140218
  Transmission Date: 20141002
  Serious: Yes (Other)
  Sender: FDA-Public Use
  Company Number: 1000052099

PATIENT
  Age: 67 Year
  Sex: Female

DRUGS (5)
  1. VIIBRYD [Suspect]
     Indication: MAJOR DEPRESSION
     Dosage: 10MG (10 MG, 1 IN 1 D), ORAL
     Route: 048
     Dates: start: 20131203, end: 20131204
  2. TRAZODONE (TRAZODONE) (TRAZODONE) [Concomitant]
  3. WELLBUTRIN (BUPROPION HYDROCHLORIDE) (BUPROPION HYDROCHLORIDE) [Concomitant]
  4. PROZAC (FLUOXENTINE HYDROCHLORIDE) (FLUOXETINE HYDROCHLORIDE) [Concomitant]
  5. LORAZEPAM (LORAZEPAM) (LORAZEPAM) [Concomitant]

REACTIONS (2)
  - Vertigo [None]
  - Nausea [None]
